FAERS Safety Report 12721466 (Version 1)
Quarter: 2016Q3

REPORT INFORMATION
  Report Type: Other
  Country: US (occurrence: US)
  Receive Date: 20160907
  Receipt Date: 20160907
  Transmission Date: 20161109
  Serious: No
  Sender: FDA-Public Use
  Company Number: US-COL_21950_2016

PATIENT
  Age: 58 Year
  Sex: Female

DRUGS (1)
  1. COLGATE TOTAL DAILY REPAIR [Suspect]
     Active Substance: SODIUM FLUORIDE\TRICLOSAN
     Indication: PRODUCT USED FOR UNKNOWN INDICATION
     Dosage: A PEA SIZE ON THE BRUSH/TID/
     Route: 048
     Dates: start: 20160113, end: 20160118

REACTIONS (4)
  - Glossitis [Not Recovered/Not Resolved]
  - Tooth disorder [Not Recovered/Not Resolved]
  - Hypoaesthesia oral [Not Recovered/Not Resolved]
  - Tongue injury [Not Recovered/Not Resolved]

NARRATIVE: CASE EVENT DATE: 201512
